FAERS Safety Report 21552311 (Version 2)
Quarter: 2022Q4

REPORT INFORMATION
  Report Type: Report from Study
  Country: US (occurrence: None)
  Receive Date: 20221104
  Receipt Date: 20221222
  Transmission Date: 20230113
  Serious: Yes (Hospitalization)
  Sender: FDA-Public Use
  Company Number: US-Merck Healthcare KGaA-9361902

PATIENT
  Sex: Female

DRUGS (1)
  1. REBIF [Suspect]
     Active Substance: INTERFERON BETA-1A
     Indication: Multiple sclerosis
     Route: 058
     Dates: start: 20181130

REACTIONS (6)
  - Blood magnesium decreased [Unknown]
  - Dyspnoea [Unknown]
  - Chest discomfort [Unknown]
  - Wheezing [Unknown]
  - Cough [Unknown]
  - Hyperhidrosis [Unknown]
